FAERS Safety Report 5915110-7 (Version None)
Quarter: 2008Q4

REPORT INFORMATION
  Report Type: 
  Country: None (occurrence: None)
  Receive Date: 20081010
  Receipt Date: 20081006
  Transmission Date: 20090506
  Serious: Yes (Other)
  Sender: FDA-Public Use
  Company Number: B0540115A

PATIENT
  Age: 67 Year
  Sex: Male

DRUGS (1)
  1. REQUIP [Suspect]
     Indication: PARKINSON'S DISEASE
     Dosage: 24MG THREE TIMES PER DAY
     Route: 048

REACTIONS (2)
  - DEPENDENCE [None]
  - ILL-DEFINED DISORDER [None]
